FAERS Safety Report 6094448-X (Version None)
Quarter: 2009Q1

REPORT INFORMATION
  Report Type: 
  Country: None (occurrence: None)
  Receive Date: 20090224
  Receipt Date: 20090209
  Transmission Date: 20090719
  Serious: Yes (Other)
  Sender: FDA-Public Use
  Company Number: 2009S1002211

PATIENT
  Sex: Female

DRUGS (6)
  1. CITALOPRAM HYDROBROMIDE [Suspect]
     Indication: DRUG USE FOR UNKNOWN INDICATION
  2. PAROXETINE HCL [Suspect]
     Indication: DRUG USE FOR UNKNOWN INDICATION
     Dosage: 20 MG; 30 MG; 15 MG; DAILY; 30 MG; DAILY
     Dates: start: 20011201, end: 20020225
  3. PAROXETINE HCL [Suspect]
     Indication: DRUG USE FOR UNKNOWN INDICATION
     Dosage: 20 MG; 30 MG; 15 MG; DAILY; 30 MG; DAILY
     Dates: start: 20010717
  4. PAROXETINE HCL [Suspect]
     Indication: DRUG USE FOR UNKNOWN INDICATION
     Dosage: 20 MG; 30 MG; 15 MG; DAILY; 30 MG; DAILY
     Dates: start: 20011012
  5. PAROXETINE HCL [Suspect]
     Indication: DRUG USE FOR UNKNOWN INDICATION
     Dosage: 20 MG; 30 MG; 15 MG; DAILY; 30 MG; DAILY
     Dates: start: 20011101
  6. VENLAFAXINE HCL [Concomitant]

REACTIONS (8)
  - APATHY [None]
  - APPETITE DISORDER [None]
  - DRUG WITHDRAWAL SYNDROME [None]
  - EMOTIONAL DISTRESS [None]
  - IRRITABILITY [None]
  - OVERDOSE [None]
  - TEARFULNESS [None]
  - WEIGHT FLUCTUATION [None]
